FAERS Safety Report 9537933 (Version 1)
Quarter: 2013Q3

REPORT INFORMATION
  Report Type: Spontaneous
  Country: FR (occurrence: FR)
  Receive Date: 20130919
  Receipt Date: 20130919
  Transmission Date: 20140515
  Serious: Yes (Other)
  Sender: FDA-Public Use
  Company Number: PHHY2013FR102867

PATIENT
  Age: 24 Year
  Sex: Female
  Weight: 65 kg

DRUGS (4)
  1. LEELOO [Suspect]
     Dosage: 1 DF, DAILY FOR THREE WEEKS
     Route: 048
     Dates: start: 20130501, end: 20130531
  2. PAROXETINE [Concomitant]
     Indication: DEPRESSION
     Dosage: 20 MG, DAILY
     Route: 048
  3. PAROXETINE [Concomitant]
     Dosage: 30 MG, DAILY
     Route: 048
  4. HYPNOTICS [Concomitant]

REACTIONS (5)
  - Anxiety [Recovered/Resolved]
  - Insomnia [Recovered/Resolved]
  - Irritability [Recovered/Resolved]
  - Decreased appetite [Recovered/Resolved]
  - Depression [Recovered/Resolved]
